FAERS Safety Report 14956964 (Version 1)
Quarter: 2018Q2

REPORT INFORMATION
  Report Type: Spontaneous
  Country: AU (occurrence: AU)
  Receive Date: 20180531
  Receipt Date: 20180531
  Transmission Date: 20180711
  Serious: Yes (Other)
  Sender: FDA-Public Use
  Company Number: AU-SA-2018SA143166

PATIENT
  Age: 68 Year
  Sex: Male

DRUGS (1)
  1. LANTUS [Suspect]
     Active Substance: INSULIN GLARGINE
     Indication: TYPE 2 DIABETES MELLITUS
     Dosage: UNK UNK, BID
     Route: 051

REACTIONS (7)
  - Blindness unilateral [Unknown]
  - Blood cholesterol abnormal [Unknown]
  - Hyperhidrosis [Unknown]
  - Off label use [Unknown]
  - Cerebrovascular accident [Unknown]
  - Hypoglycaemia [Unknown]
  - Hypertension [Unknown]

NARRATIVE: CASE EVENT DATE: 20180527
